FAERS Safety Report 9019762 (Version 1)
Quarter: 2013Q1

REPORT INFORMATION
  Report Type: Report from Study
  Country: CA (occurrence: CA)
  Receive Date: 20130118
  Receipt Date: 20130118
  Transmission Date: 20140127
  Serious: Yes (Other)
  Sender: FDA-Public Use
  Company Number: CA-ROCHE-1167556

PATIENT
  Sex: Male

DRUGS (8)
  1. VEMURAFENIB [Suspect]
     Indication: METASTATIC MALIGNANT MELANOMA
     Route: 048
     Dates: start: 2012, end: 201301
  2. TYLENOL WITH CODEINE [Concomitant]
     Indication: PAIN
  3. VITAMIN C [Concomitant]
  4. METFORMIN [Concomitant]
     Indication: DIABETES MELLITUS
  5. RABEPRAZOLE [Concomitant]
  6. ZANTAC [Concomitant]
  7. PMS-DEXAMETHASONE [Concomitant]
  8. HYDROGEN PEROXIDE [Concomitant]

REACTIONS (2)
  - Oral herpes [Recovering/Resolving]
  - Disease progression [Not Recovered/Not Resolved]
